FAERS Safety Report 7073951-X (Version None)
Quarter: 2010Q4

REPORT INFORMATION
  Report Type: 
  Country: None (occurrence: None)
  Receive Date: 20101029
  Receipt Date: 20101021
  Transmission Date: 20110411
  Serious: Yes (Hospitalization, Other)
  Sender: FDA-Public Use
  Company Number: PHHY2010CH70800

PATIENT
  Age: 51 Year
  Sex: Female

DRUGS (1)
  1. SANDOSTATIN [Suspect]
     Dosage: 0.3 MG/ DAY
     Route: 058
     Dates: start: 20100705, end: 20100730

REACTIONS (5)
  - AUTOIMMUNE DISORDER [None]
  - CENTRAL NERVOUS SYSTEM LESION [None]
  - CSF IMMUNOGLOBULIN G INDEX [None]
  - CSF OLIGOCLONAL BAND PRESENT [None]
  - PARAESTHESIA [None]
